FAERS Safety Report 8018853-7 (Version None)
Quarter: 2012Q1

REPORT INFORMATION
  Report Type: 
  Country: None (occurrence: None)
  Receive Date: 20120103
  Receipt Date: 20111220
  Transmission Date: 20120608
  Serious: Yes (Other)
  Sender: FDA-Public Use
  Company Number: US-JNJFOC-20111210816

PATIENT
  Sex: Female

DRUGS (34)
  1. CYCLOPHOSPHAMIDE [Suspect]
     Dosage: EVERY 2 WEEKS
     Route: 042
  2. BEVACIZUMAB [Suspect]
     Dosage: CYCLES 1-4
     Route: 042
  3. BEVACIZUMAB [Suspect]
     Route: 042
  4. BEVACIZUMAB [Suspect]
     Dosage: CYCLES 1-4
     Route: 042
  5. CYCLOPHOSPHAMIDE [Suspect]
     Indication: BREAST CANCER
     Route: 042
  6. BEVACIZUMAB [Suspect]
     Route: 042
  7. BEVACIZUMAB [Suspect]
     Dosage: CYCLES 1-4
     Route: 042
  8. PACLITAXEL [Suspect]
     Indication: BREAST CANCER
     Route: 042
  9. DOXORUBICIN HCL [Suspect]
     Dosage: EVERY 2 WEEKS
     Route: 042
  10. PEGFILGRASTIM [Suspect]
     Route: 058
  11. BEVACIZUMAB [Suspect]
     Route: 042
  12. CYCLOPHOSPHAMIDE [Suspect]
     Route: 042
  13. BEVACIZUMAB [Suspect]
     Route: 042
  14. BEVACIZUMAB [Suspect]
     Route: 042
  15. PACLITAXEL [Suspect]
     Route: 042
  16. DOXORUBICIN HCL [Suspect]
     Dosage: EVERY 2 WEEKS
     Route: 042
  17. DOXORUBICIN HCL [Suspect]
     Dosage: EVERY 2 WEEKS
     Route: 042
  18. BEVACIZUMAB [Suspect]
     Dosage: CYCLES 1-4
     Route: 042
  19. PACLITAXEL [Suspect]
     Route: 042
  20. PEGFILGRASTIM [Suspect]
     Route: 058
  21. BEVACIZUMAB [Suspect]
     Route: 042
  22. PEGFILGRASTIM [Suspect]
     Indication: BREAST CANCER
     Route: 058
  23. PEGFILGRASTIM [Suspect]
     Route: 058
  24. BEVACIZUMAB [Suspect]
     Indication: BREAST CANCER
     Dosage: CYCLES 1-4
     Route: 042
  25. BEVACIZUMAB [Suspect]
     Dosage: CYCLES 1-4
     Route: 042
  26. BEVACIZUMAB [Suspect]
     Route: 042
  27. BEVACIZUMAB [Suspect]
     Route: 042
  28. DOXORUBICIN HCL [Suspect]
     Indication: BREAST CANCER
     Dosage: EVERY 2 WEEKS
     Route: 042
  29. CYCLOPHOSPHAMIDE [Suspect]
     Route: 042
  30. BEVACIZUMAB [Suspect]
     Dosage: CYCLES 1-4
     Route: 042
  31. BEVACIZUMAB [Suspect]
     Dosage: CYCLES 1-4
     Route: 042
  32. BEVACIZUMAB [Suspect]
     Route: 042
  33. BEVACIZUMAB [Suspect]
     Route: 042
  34. PACLITAXEL [Suspect]
     Route: 042

REACTIONS (1)
  - MYALGIA [None]
